FAERS Safety Report 17195115 (Version 1)
Quarter: 2020Q1

REPORT INFORMATION
  Report Type: Spontaneous
  Country: US (occurrence: US)
  Receive Date: 20191223
  Receipt Date: 20191223
  Transmission Date: 20200409
  Serious: Yes (Disabling)
  Sender: FDA-Public Use
  Company Number: None

PATIENT
  Sex: Female
  Weight: 63.9 kg

DRUGS (11)
  1. BUPRENORPHINE. [Suspect]
     Active Substance: BUPRENORPHINE
     Indication: BACK PAIN
     Dosage: ?          OTHER STRENGTH:MCG;QUANTITY:4 PATCH(ES);OTHER FREQUENCY:ONCE A WEEK;?
     Route: 062
     Dates: start: 20191219
  2. OXYCODONE [Concomitant]
     Active Substance: OXYCODONE
  3. WOMENS MULTI VIT [Concomitant]
  4. GABAPENTIN. [Suspect]
     Active Substance: GABAPENTIN
     Indication: NEURALGIA
     Dosage: ?          QUANTITY:6 CAPSULE(S);?
     Route: 048
     Dates: start: 20091213
  5. FENTANYL TRANSDERMAL SYSTEM [Suspect]
     Active Substance: FENTANYL
  6. PROBIOTIC SENNA [Concomitant]
  7. HYDROCODONE BITARTRATE AND ACETAMINOPHEN [Suspect]
     Active Substance: ACETAMINOPHEN\HYDROCODONE BITARTRATE
  8. VIT D [Concomitant]
     Active Substance: VITAMIN D NOS
  9. VITAMIN C [Concomitant]
     Active Substance: ASCORBIC ACID
  10. BUPRENORPHINE. [Suspect]
     Active Substance: BUPRENORPHINE
     Indication: PAIN IN EXTREMITY
     Dosage: ?          OTHER STRENGTH:MCG;QUANTITY:4 PATCH(ES);OTHER FREQUENCY:ONCE A WEEK;?
     Route: 062
     Dates: start: 20191219
  11. PANTOPRAZOLE [Concomitant]
     Active Substance: PANTOPRAZOLE

REACTIONS (9)
  - Pain in extremity [None]
  - Feeling abnormal [None]
  - Dizziness [None]
  - Back pain [None]
  - Sedation [None]
  - Drug ineffective [None]
  - Thinking abnormal [None]
  - Speech disorder [None]
  - Dyspnoea [None]
